FAERS Safety Report 4946261-1 (Version None)
Quarter: 2006Q1

REPORT INFORMATION
  Report Type: 
  Country: None (occurrence: None)
  Receive Date: 20060317
  Receipt Date: 20060315
  Transmission Date: 20060701
  Serious: Yes (Life-Threatening, Hospitalization)
  Sender: FDA-Public Use
  Company Number: US-RB-2949-2006

PATIENT
  Sex: Female
  Weight: 52.21 kg

DRUGS (6)
  1. SUBOXONE [Suspect]
     Route: 060
     Dates: start: 20051207, end: 20051207
  2. SUBOXONE [Suspect]
     Route: 060
     Dates: start: 20051208, end: 20051208
  3. SUBOXONE [Suspect]
     Route: 060
     Dates: start: 20051209
  4. ESCITALOPRAM OXALATE [Concomitant]
     Indication: DEPRESSION
     Route: 048
     Dates: start: 20051207
  5. TRAZODONE [Concomitant]
     Indication: INSOMNIA
     Dosage: PATIENT REPORTS AS NEEDED.
     Route: 048
     Dates: start: 20051207
  6. CYANOCOBALAMIN [Concomitant]
     Dosage: PATIENT REPORTS STARTED IN 2003.
     Route: 030

REACTIONS (2)
  - ANAEMIA [None]
  - LEUKOPENIA [None]
